FAERS Safety Report 25815784 (Version 1)
Quarter: 2025Q3

REPORT INFORMATION
  Report Type: Other
  Country: CA (occurrence: CA)
  Receive Date: 20250918
  Receipt Date: 20250918
  Transmission Date: 20251020
  Serious: Yes (Hospitalization, Other)
  Sender: DEXCEL LTD.
  Company Number: CA-DEXPHARM-2025-4605

PATIENT
  Age: 69 Year
  Sex: Male

DRUGS (2)
  1. TOFACITINIB [Suspect]
     Active Substance: TOFACITINIB
  2. RITUXIMAB [Suspect]
     Active Substance: RITUXIMAB

REACTIONS (1)
  - Respiratory failure [Unknown]
